FAERS Safety Report 4924438-9 (Version None)
Quarter: 2006Q1

REPORT INFORMATION
  Report Type: 
  Country: None (occurrence: None)
  Receive Date: 20060227
  Receipt Date: 20060206
  Transmission Date: 20060701
  Serious: Yes (Other)
  Sender: FDA-Public Use
  Company Number: GB-ROCHE-435513

PATIENT
  Age: 67 Year
  Sex: Female
  Weight: 82 kg

DRUGS (6)
  1. BONIVA [Suspect]
     Indication: STEROID THERAPY
     Route: 048
     Dates: start: 20060201, end: 20060201
  2. PREDNISOLONE [Concomitant]
     Indication: POLYMYALGIA RHEUMATICA
     Route: 048
     Dates: start: 20030615
  3. SIMVASTATIN [Concomitant]
     Route: 048
  4. OMEPRAZOLE [Concomitant]
  5. BENDROFLUAZIDE [Concomitant]
  6. IRBESARTAN [Concomitant]

REACTIONS (4)
  - ARTHRALGIA [None]
  - BONE PAIN [None]
  - CRYING [None]
  - SUICIDAL IDEATION [None]
